FAERS Safety Report 5917501-7 (Version None)
Quarter: 2008Q4

REPORT INFORMATION
  Report Type: 
  Country: None (occurrence: None)
  Receive Date: 20081009
  Receipt Date: 20080911
  Transmission Date: 20090506
  Serious: Yes (Death)
  Sender: FDA-Public Use
  Company Number: 8037695

PATIENT
  Age: 28 Year
  Sex: Male

DRUGS (2)
  1. PREDNISOLONE [Suspect]
     Indication: IMMUNOSUPPRESSION
  2. CYCLOPHOSPHAMIDE [Suspect]
     Indication: IMMUNOSUPPRESSION

REACTIONS (3)
  - ADENOVIRAL HEPATITIS [None]
  - GASTROINTESTINAL DISORDER [None]
  - RENAL DISORDER [None]
